FAERS Safety Report 16876917 (Version 1)
Quarter: 2019Q4

REPORT INFORMATION
  Report Type: Spontaneous
  Country: US (occurrence: US)
  Receive Date: 20191002
  Receipt Date: 20191002
  Transmission Date: 20200122
  Serious: Yes (Other)
  Sender: FDA-Public Use
  Company Number: None

PATIENT
  Age: 17 Year
  Sex: Male
  Weight: 50.85 kg

DRUGS (2)
  1. VALPROATE [Concomitant]
     Active Substance: VALPROIC ACID
     Dates: start: 20190930, end: 20190930
  2. DIHYDROERGOTAMINE MESYLATE INJECTION [Suspect]
     Active Substance: DIHYDROERGOTAMINE MESYLATE
     Indication: MIGRAINE
     Route: 041
     Dates: start: 20191001, end: 20191001

REACTIONS (1)
  - Bradycardia [None]

NARRATIVE: CASE EVENT DATE: 20191001
